APPROVED DRUG PRODUCT: MYCOPHENOLATE MOFETIL HYDROCHLORIDE
Active Ingredient: MYCOPHENOLATE MOFETIL HYDROCHLORIDE
Strength: 500MG/VIAL
Dosage Form/Route: INJECTABLE;INJECTION
Application: A212130 | Product #001 | TE Code: AP
Applicant: MEITHEAL PHARMACEUTICALS INC
Approved: Jan 15, 2021 | RLD: No | RS: No | Type: RX